FAERS Safety Report 16895908 (Version 2)
Quarter: 2019Q4

REPORT INFORMATION
  Report Type: Spontaneous
  Country: GB (occurrence: GB)
  Receive Date: 20191008
  Receipt Date: 20191025
  Transmission Date: 20200122
  Serious: Yes (Disabling)
  Sender: FDA-Public Use
  Company Number: GB-MYLANLABS-MK-6036120

PATIENT
  Sex: Female

DRUGS (4)
  1. ST. JOHN WORT [Concomitant]
     Indication: DEPRESSION
     Dosage: 1 DOSAGE FORM
     Route: 048
     Dates: start: 200206, end: 200208
  2. CITALOPRAM [Suspect]
     Active Substance: CITALOPRAM HYDROBROMIDE
     Indication: DEPRESSION
     Dosage: UNK
     Route: 064
  3. CITALOPRAM [Suspect]
     Active Substance: CITALOPRAM HYDROBROMIDE
     Indication: ANXIETY
     Dosage: 20 MG,UNK
     Route: 064
     Dates: start: 200202
  4. CITALOPRAM [Suspect]
     Active Substance: CITALOPRAM HYDROBROMIDE
     Dosage: 20 MILLIGRAM, ONGOING
     Route: 064
     Dates: start: 200208

REACTIONS (2)
  - Acquired epileptic aphasia [Not Recovered/Not Resolved]
  - Exposure via father [Not Recovered/Not Resolved]
